FAERS Safety Report 5921787-2 (Version None)
Quarter: 2008Q4

REPORT INFORMATION
  Report Type: 
  Country: None (occurrence: None)
  Receive Date: 20081016
  Receipt Date: 20081016
  Transmission Date: 20090506
  Serious: Yes (Hospitalization)
  Sender: FDA-Public Use
  Company Number: None

PATIENT
  Age: 19 Year
  Sex: Female
  Weight: 79.4 kg

DRUGS (1)
  1. IBUPROFEN [Suspect]
     Indication: PAIN
     Dates: start: 20080515, end: 20080616

REACTIONS (3)
  - GASTRIC HAEMORRHAGE [None]
  - GASTRITIS EROSIVE [None]
  - MALLORY-WEISS SYNDROME [None]
